FAERS Safety Report 6866060-3 (Version None)
Quarter: 2010Q3

REPORT INFORMATION
  Report Type: 
  Country: None (occurrence: None)
  Receive Date: 20100722
  Receipt Date: 20100714
  Transmission Date: 20110219
  Serious: Yes (Life-Threatening, Hospitalization)
  Sender: FDA-Public Use
  Company Number: CA-TYCO HEALTHCARE/MALLINCKRODT-T201001623

PATIENT
  Sex: Female

DRUGS (6)
  1. ULTRA-TECHNEKOW [Suspect]
     Dosage: UNK
  2. ULTRA-TECHNEKOW [Suspect]
     Dosage: UNK
  3. TETROFOSMIN [Suspect]
     Dosage: UNK
  4. TETROFOSMIN [Suspect]
     Dosage: UNK
  5. PERSANTINE [Suspect]
     Dosage: UNK
  6. AMINOPHYLLINE [Suspect]
     Dosage: UNK

REACTIONS (2)
  - INJECTION SITE NECROSIS [None]
  - RENAL FAILURE [None]
